FAERS Safety Report 12326857 (Version 1)
Quarter: 2016Q2

REPORT INFORMATION
  Report Type: Spontaneous
  Country: US (occurrence: US)
  Receive Date: 20160503
  Receipt Date: 20160503
  Transmission Date: 20160815
  Serious: Yes (Hospitalization)
  Sender: FDA-Public Use
  Company Number: US-BRACCO-013065

PATIENT
  Sex: Male
  Weight: 73 kg

DRUGS (1)
  1. BARIUM [Suspect]
     Active Substance: BARIUM
     Indication: GASTROINTESTINAL TUBE INSERTION
     Route: 048

REACTIONS (1)
  - Intestinal obstruction [Recovered/Resolved]
